FAERS Safety Report 18510644 (Version 1)
Quarter: 2020Q4

REPORT INFORMATION
  Report Type: Spontaneous
  Country: US (occurrence: US)
  Receive Date: 20201116
  Receipt Date: 20201116
  Transmission Date: 20210114
  Serious: Yes (Hospitalization)
  Sender: FDA-Public Use
  Company Number: None

PATIENT
  Age: 67 Year
  Sex: Male
  Weight: 74.8 kg

DRUGS (16)
  1. AMLODIPINE  2.5 MG PO DAILY [Concomitant]
  2. LETERMOVIR 480 MG PO BID [Concomitant]
  3. PANTOPRAZOLE 40 MG PO DAILY [Concomitant]
  4. POSACONAZOLE  300 MG DAILY [Concomitant]
  5. TACROLIMUS  1 MG IN AM 1 MG ALTERNATE 2 MG IN PM [Concomitant]
  6. TRAMADOL 50 MG PO PRN [Concomitant]
  7. URSODIOL 300 MG PO TID [Concomitant]
  8. ACYCLOVIR 400 MG PO BID [Concomitant]
  9. ONDANSETRON 8 MG PO PRN [Concomitant]
  10. MULTIPLE VITAMIN 1 PO DAILY [Concomitant]
  11. AZACITIDINE. [Suspect]
     Active Substance: AZACITIDINE
     Indication: MYELODYSPLASTIC SYNDROME
     Dosage: ?          OTHER FREQUENCY:DAY 1 TO DAY 5;?
     Route: 041
     Dates: start: 20201102, end: 20201106
  12. VALPROIC ACID. [Suspect]
     Active Substance: VALPROIC ACID
     Indication: MYELODYSPLASTIC SYNDROME
     Route: 048
     Dates: start: 20201102
  13. ATOVAQUONE  1500 MG PO DAILY [Concomitant]
  14. FOLIC ACID 1 MG PO BID [Concomitant]
  15. TAMSULOSIN  0.4 MG PO BID [Concomitant]
  16. TRIAMCINOLONE ACETONIDE  0.1 % CREAM DAILY [Concomitant]

REACTIONS (5)
  - Cough [None]
  - Myalgia [None]
  - White blood cell count decreased [None]
  - Dyspnoea exertional [None]
  - Pyrexia [None]

NARRATIVE: CASE EVENT DATE: 20201113
